FAERS Safety Report 17950053 (Version 1)
Quarter: 2020Q2

REPORT INFORMATION
  Report Type: Spontaneous
  Country: FR (occurrence: FR)
  Receive Date: 20200626
  Receipt Date: 20200626
  Transmission Date: 20200714
  Serious: Yes (Other)
  Sender: FDA-Public Use
  Company Number: FR-ROCHE-2631374

PATIENT
  Age: 27 Year
  Sex: Female

DRUGS (8)
  1. PREDNISOLONE. [Concomitant]
     Active Substance: PREDNISOLONE
  2. LARGACTIL [CHLORPROMAZINE] [Concomitant]
     Active Substance: CHLORPROMAZINE
  3. BROMAZEPAM [Concomitant]
     Active Substance: BROMAZEPAM
  4. ESOMEPRAZOLE. [Concomitant]
     Active Substance: ESOMEPRAZOLE MAGNESIUM
  5. OXAZEPAM. [Concomitant]
     Active Substance: OXAZEPAM
  6. PREGABALINE [Concomitant]
     Active Substance: PREGABALIN
  7. DULOXETINE HYDROCHLORIDE. [Concomitant]
     Active Substance: DULOXETINE HYDROCHLORIDE
  8. AVASTIN [Suspect]
     Active Substance: BEVACIZUMAB
     Indication: OEDEMA
     Dosage: 25 MG/M
     Route: 042

REACTIONS (2)
  - Deafness neurosensory [Recovering/Resolving]
  - Dizziness [Recovering/Resolving]

NARRATIVE: CASE EVENT DATE: 20200515
